FAERS Safety Report 5451706-7 (Version None)
Quarter: 2007Q3

REPORT INFORMATION
  Report Type: 
  Country: None (occurrence: None)
  Receive Date: 20070913
  Receipt Date: 20070904
  Transmission Date: 20080115
  Serious: Yes (Other)
  Sender: FDA-Public Use
  Company Number: CA-PFIZER INC-2007068789

PATIENT
  Age: 47 Year
  Sex: Male

DRUGS (2)
  1. CHAMPIX [Suspect]
     Indication: EX-SMOKER
     Route: 048
  2. RABEPRAZOLE SODIUM [Concomitant]

REACTIONS (3)
  - CHEST PAIN [None]
  - PERICARDITIS [None]
  - SLEEP DISORDER [None]
